FAERS Safety Report 6409336-6 (Version None)
Quarter: 2009Q4

REPORT INFORMATION
  Report Type: 
  Country: None (occurrence: None)
  Receive Date: 20091019
  Receipt Date: 20091019
  Transmission Date: 20100525
  Serious: Yes (Life-Threatening, Hospitalization, Disabling, Congenital Anomaly, Other)
  Sender: FDA-Public Use
  Company Number: None

PATIENT
  Sex: Female
  Weight: 90.7194 kg

DRUGS (1)
  1. YAZ [Suspect]
     Dosage: 1 TABLET 1XDAILY ORAL
     Route: 048
     Dates: start: 20060303, end: 20070403

REACTIONS (5)
  - HYPERPHAGIA [None]
  - MALAISE [None]
  - MENORRHAGIA [None]
  - MENSTRUAL DISORDER [None]
  - THROMBOSIS [None]
